FAERS Safety Report 17713817 (Version 2)
Quarter: 2020Q2

REPORT INFORMATION
  Report Type: Report from Study
  Country: DE (occurrence: DE)
  Receive Date: 20200427
  Receipt Date: 20200603
  Transmission Date: 20200714
  Serious: Yes (Other)
  Sender: FDA-Public Use
  Company Number: DE-BAUSCH-BL-2020-012085

PATIENT
  Age: 50 Year
  Sex: Female
  Weight: 67 kg

DRUGS (6)
  1. CARBOPLATIN. [Concomitant]
     Active Substance: CARBOPLATIN
     Indication: BREAST CANCER
     Dosage: RECEIVED IN MAR/2019 AND IN MAY/2019
     Dates: start: 20190313
  2. EPIRUBICIN [Suspect]
     Active Substance: EPIRUBICIN
     Indication: BREAST CANCER
     Dosage: RECEIVED IN MAR/2019 AND IN MAY/2019
     Route: 042
     Dates: start: 20190313
  3. PACLITAXEL. [Suspect]
     Active Substance: PACLITAXEL
     Indication: BREAST CANCER
     Dosage: RECEIVED IN MAR/2019 AND IN MAY/2019
     Route: 042
     Dates: start: 20190313
  4. DEKRISTOL [Concomitant]
     Active Substance: CHOLECALCIFEROL
     Indication: PRODUCT USED FOR UNKNOWN INDICATION
  5. DEXAMETHASONE. [Suspect]
     Active Substance: DEXAMETHASONE
     Indication: BREAST CANCER
     Route: 065
     Dates: start: 20190313
  6. CYCLOPHOSPHAMIDE. [Suspect]
     Active Substance: CYCLOPHOSPHAMIDE
     Indication: BREAST CANCER
     Dosage: RECEIVED IN MAR/2019 AND IN MAY/2019
     Route: 065
     Dates: start: 20190313

REACTIONS (2)
  - Jugular vein thrombosis [Unknown]
  - Subclavian vein thrombosis [Unknown]

NARRATIVE: CASE EVENT DATE: 20190531
